FAERS Safety Report 7330662-0 (Version None)
Quarter: 2011Q1

REPORT INFORMATION
  Report Type: 
  Country: None (occurrence: None)
  Receive Date: 20110225
  Receipt Date: 20110225
  Transmission Date: 20110831
  Serious: No
  Sender: FDA-Public Use
  Company Number: None

PATIENT
  Sex: Male
  Weight: 61.2356 kg

DRUGS (1)
  1. ACCUTANE [Suspect]
     Indication: ACNE
     Dosage: 10 - 40 GRAMS/DAY 3 MONTHS PO
     Route: 048
     Dates: start: 19900501, end: 19900801

REACTIONS (28)
  - SKIN EXFOLIATION [None]
  - HEADACHE [None]
  - GASTROINTESTINAL MOTILITY DISORDER [None]
  - ABDOMINAL PAIN UPPER [None]
  - NASOPHARYNGITIS [None]
  - DRY SKIN [None]
  - CONSTIPATION [None]
  - JOINT CREPITATION [None]
  - TINNITUS [None]
  - SENSORY DISTURBANCE [None]
  - POLLAKIURIA [None]
  - GINGIVAL DISORDER [None]
  - PRURITUS [None]
  - APATHY [None]
  - MOOD SWINGS [None]
  - DEHYDRATION [None]
  - EYE DISCHARGE [None]
  - FATIGUE [None]
  - BOWEL MOVEMENT IRREGULARITY [None]
  - LIP DRY [None]
  - DIARRHOEA [None]
  - HAEMORRHOIDS [None]
  - ALOPECIA [None]
  - WEIGHT DECREASED [None]
  - RASH [None]
  - IRRITABLE BOWEL SYNDROME [None]
  - OROPHARYNGEAL PAIN [None]
  - DISTURBANCE IN ATTENTION [None]
